FAERS Safety Report 4285827-1 (Version None)
Quarter: 2004Q1

REPORT INFORMATION
  Report Type: 
  Country: None (occurrence: None)
  Receive Date: 20040203
  Receipt Date: 20031123
  Transmission Date: 20041129
  Serious: Yes (Hospitalization, Other)
  Sender: FDA-Public Use
  Company Number: KII-2003-0007019

PATIENT
  Age: 63 Year
  Sex: Male

DRUGS (6)
  1. MORPHINE SULFATE (SIMILAR TO NDA 190516)(MORPHINE SULFATE) [Suspect]
     Indication: PAIN
     Dosage: ORAL
     Route: 048
  2. ACETAMINOPHEN W/HYDROCODONE BITARTRATE (PARACETAMOL, HYDROCODONE) [Suspect]
     Indication: BACK PAIN
  3. METHADONE HCL [Suspect]
     Indication: BACK PAIN
  4. PROPOXYPHENE HCL [Suspect]
     Indication: BACK PAIN
  5. ACETYLSALICYLIC ACID SRT [Suspect]
     Indication: BACK PAIN
  6. TRAMADOL (TRAMADOL) [Suspect]
     Indication: BACK PAIN

REACTIONS (18)
  - AGGRESSION [None]
  - AGITATION [None]
  - ALANINE AMINOTRANSFERASE INCREASED [None]
  - ASPARTATE AMINOTRANSFERASE INCREASED [None]
  - BLOOD POTASSIUM DECREASED [None]
  - BODY TEMPERATURE INCREASED [None]
  - CONFUSIONAL STATE [None]
  - DEPRESSED LEVEL OF CONSCIOUSNESS [None]
  - DISORIENTATION [None]
  - HEART RATE INCREASED [None]
  - HYPOTENSION [None]
  - LIVER FUNCTION TEST ABNORMAL [None]
  - MENTAL STATUS CHANGES [None]
  - MULTIPLE DRUG OVERDOSE [None]
  - RESPIRATORY DEPRESSION [None]
  - SOMNOLENCE [None]
  - SUICIDE ATTEMPT [None]
  - WHITE BLOOD CELL COUNT INCREASED [None]
